FAERS Safety Report 14444227 (Version 2)
Quarter: 2018Q1

REPORT INFORMATION
  Report Type: Report from Study
  Country: None (occurrence: BE)
  Receive Date: 20180125
  Receipt Date: 20180130
  Transmission Date: 20180509
  Serious: Yes (Death, Hospitalization)
  Sender: FDA-Public Use
  Company Number: BE-ABBVIE-18K-013-2236734-00

PATIENT
  Age: 85 Year
  Sex: Male

DRUGS (3)
  1. DUODOPA [Suspect]
     Active Substance: CARBIDOPA\LEVODOPA
     Dosage: MD=4ML??CD=5.2ML/HR DURING 16HRS ??ED=4.5ML??ND=3.1ML/HR DURING 8HRS
     Route: 050
     Dates: start: 20170320, end: 20180119
  2. DUODOPA [Suspect]
     Active Substance: CARBIDOPA\LEVODOPA
     Dosage: DOSES CONTNINUOUSLY MONITORED AND ADAPTED
     Route: 050
     Dates: start: 20130627, end: 20170320
  3. DUODOPA [Suspect]
     Active Substance: CARBIDOPA\LEVODOPA
     Indication: PARKINSON^S DISEASE
     Dosage: MD=4ML??CD=4.5ML/HR DURING 16HRS ??ED=2ML??ND=2.5ML/HR DURING 8HRS
     Route: 050
     Dates: start: 20130212, end: 20130627

REACTIONS (3)
  - Asthenia [Unknown]
  - Pneumonia [Unknown]
  - Death [Fatal]

NARRATIVE: CASE EVENT DATE: 20180119
